FAERS Safety Report 4549923-3 (Version None)
Quarter: 2004Q4

REPORT INFORMATION
  Report Type: 
  Country: None (occurrence: None)
  Receive Date: 20041230
  Receipt Date: 20040510
  Transmission Date: 20050328
  Serious: Yes (Life-Threatening, Hospitalization)
  Sender: FDA-Public Use
  Company Number: 04-05-0674

PATIENT
  Age: 41 Year
  Sex: Female
  Weight: 127.4608 kg

DRUGS (5)
  1. CLOZAPINE [Suspect]
     Indication: SCHIZOPHRENIA, PARANOID TYPE
     Dosage: SEE IMAGE
     Route: 048
     Dates: start: 20040413, end: 20040503
  2. CLOZAPINE [Suspect]
     Indication: SCHIZOPHRENIA, PARANOID TYPE
     Dosage: SEE IMAGE
     Route: 048
     Dates: start: 20040413, end: 20040503
  3. HALDOL [Concomitant]
  4. VALPROIC ACID [Concomitant]
  5. FLUVOXAMINE [Concomitant]

REACTIONS (7)
  - DIARRHOEA [None]
  - HYPOTENSION [None]
  - OXYGEN SATURATION ABNORMAL [None]
  - PHARYNGOLARYNGEAL PAIN [None]
  - PYREXIA [None]
  - RESPIRATORY RATE INCREASED [None]
  - TACHYCARDIA [None]
